FAERS Safety Report 17360364 (Version 1)
Quarter: 2020Q1

REPORT INFORMATION
  Report Type: Spontaneous
  Country: GB (occurrence: GB)
  Receive Date: 20200203
  Receipt Date: 20200203
  Transmission Date: 20200409
  Serious: Yes (Other)
  Sender: FDA-Public Use
  Company Number: NVSC2020GB020228

PATIENT
  Age: 37 Year
  Sex: Female

DRUGS (1)
  1. FINGOLIMOD. [Suspect]
     Active Substance: FINGOLIMOD
     Indication: RELAPSING-REMITTING MULTIPLE SCLEROSIS
     Dosage: 0.5 MG
     Route: 048
     Dates: start: 20110101, end: 20180108

REACTIONS (4)
  - Condition aggravated [Unknown]
  - Multiple sclerosis relapse [Unknown]
  - Withdrawal syndrome [Recovering/Resolving]
  - Generalised anxiety disorder [Unknown]

NARRATIVE: CASE EVENT DATE: 20190111
